FAERS Safety Report 7647433-8 (Version None)
Quarter: 2011Q3

REPORT INFORMATION
  Report Type: 
  Country: None (occurrence: None)
  Receive Date: 20110801
  Receipt Date: 20110720
  Transmission Date: 20111222
  Serious: Yes (Hospitalization, Other)
  Sender: FDA-Public Use
  Company Number: US-ASTRAZENECA-2008UW08899

PATIENT
  Age: 512 Month
  Sex: Male
  Weight: 79.4 kg

DRUGS (19)
  1. SEROQUEL [Suspect]
     Route: 048
     Dates: start: 20061005, end: 20071121
  2. THORAZINE [Concomitant]
     Dates: start: 20060101
  3. SEROQUEL [Suspect]
     Indication: BIPOLAR DISORDER
     Dosage: 25 MG - 50 MG
     Route: 048
     Dates: start: 20060601, end: 20070101
  4. SEROQUEL [Suspect]
     Route: 048
     Dates: start: 20061005, end: 20071121
  5. METFORMIN HCL [Concomitant]
     Dates: start: 20060629
  6. NOVOLIN N [Concomitant]
     Dosage: 40 UNITS, TWICE A DAY
     Dates: start: 20070226
  7. ZOLOFT [Concomitant]
     Dosage: VARIOUS, INCLUDING BUT NOT LIMITED TO 150 MG
     Dates: start: 19890101
  8. CEPHALEXIN [Concomitant]
     Dates: start: 20061011
  9. NOVOLIN R [Concomitant]
     Dosage: AS NEEDED
     Dates: start: 20070226
  10. HYDROXYZINE HYDROCHLORIDE [Concomitant]
     Indication: ANXIETY
     Dates: start: 20060629
  11. SEROQUEL [Suspect]
     Indication: DEPRESSION
     Dosage: 25 MG - 50 MG
     Route: 048
     Dates: start: 20060601, end: 20070101
  12. SEROQUEL [Suspect]
     Indication: SLEEP DISORDER
     Dosage: 25 MG - 50 MG
     Route: 048
     Dates: start: 20060601, end: 20070101
  13. ABILIFY [Concomitant]
     Dates: start: 20080401
  14. SALSALATE [Concomitant]
     Dates: start: 20060629
  15. TRAZODONE HCL [Concomitant]
     Indication: DEPRESSION
     Dosage: VARIOUS DOSES, INCLUDING BUT NOT LIMITED TO 100 MG
     Dates: start: 19890101
  16. CITALOPRAM HYDROBROMIDE [Concomitant]
     Dates: start: 20060629
  17. GLYBURIDE [Concomitant]
     Dosage: 5 MG TAB, BID BEFORE MEAL
     Dates: start: 20070226
  18. SEROQUEL [Suspect]
     Route: 048
     Dates: start: 20061005, end: 20071121
  19. CHLORPHENIRAMINE/PSEUDONEPINEPHRINE [Concomitant]
     Dosage: 8/120, BID
     Dates: start: 20061011

REACTIONS (6)
  - PANCREATITIS [None]
  - TYPE 2 DIABETES MELLITUS [None]
  - HEPATIC CIRRHOSIS [None]
  - SUICIDE ATTEMPT [None]
  - TYPE 1 DIABETES MELLITUS [None]
  - DIABETES MELLITUS INADEQUATE CONTROL [None]
